FAERS Safety Report 10221894 (Version 1)
Quarter: 2014Q2

REPORT INFORMATION
  Report Type: Report from Study
  Country: US (occurrence: US)
  Receive Date: 20140606
  Receipt Date: 20140606
  Transmission Date: 20141212
  Serious: Yes (Hospitalization, Other)
  Sender: FDA-Public Use
  Company Number: US-BIOMARINAP-US-2013-101903

PATIENT
  Age: 18 Year
  Sex: Male
  Weight: 43.84 kg

DRUGS (6)
  1. NAGLAZYME [Suspect]
     Indication: MUCOPOLYSACCHARIDOSIS VI
     Dosage: 1 MG/KG, QW
     Route: 041
     Dates: start: 20001116
  2. LISINOPRIL [Concomitant]
     Indication: HYPERTENSION
     Dosage: 5 MG, QD
     Route: 048
     Dates: start: 20080728, end: 20100901
  3. WARFARIN [Concomitant]
     Indication: HIP ARTHROPLASTY
     Dosage: 5 MG, QD
     Route: 048
     Dates: start: 20130306, end: 2013
  4. HYDROCODONE W/ACETAMINOPHEN [Concomitant]
     Indication: HIP ARTHROPLASTY
     Dosage: 5.325 MG, PRN
     Route: 048
     Dates: start: 20130304, end: 2013
  5. HYDROXINE [Concomitant]
     Indication: HIP ARTHROPLASTY
     Dosage: 50 MG, PRN
     Route: 048
     Dates: start: 20130304, end: 2013
  6. SENOKOT                            /00936101/ [Concomitant]
     Indication: HIP ARTHROPLASTY
     Dosage: 50 MG, BID
     Route: 048
     Dates: start: 20130304, end: 2013

REACTIONS (1)
  - Developmental hip dysplasia [Recovering/Resolving]
